FAERS Safety Report 5588748-7 (Version None)
Quarter: 2008Q1

REPORT INFORMATION
  Report Type: 
  Country: None (occurrence: None)
  Receive Date: 20080111
  Receipt Date: 20080103
  Transmission Date: 20080703
  Serious: Yes (Other)
  Sender: FDA-Public Use
  Company Number: B0361198A

PATIENT
  Age: 49 Year
  Sex: Female

DRUGS (5)
  1. PAROXETINE HYDROCHLORIDE [Suspect]
     Indication: DEPRESSION
     Dosage: 20MG PER DAY
     Route: 065
     Dates: start: 19980319
  2. PROZAC [Concomitant]
     Route: 065
     Dates: start: 19990819
  3. LOFEPRAMINE [Concomitant]
     Route: 065
     Dates: start: 20010823
  4. DULOXETINE [Concomitant]
     Route: 065
     Dates: start: 20050920
  5. MIRTAZAPINE [Concomitant]
     Route: 065
     Dates: start: 20041028

REACTIONS (20)
  - CONFUSIONAL STATE [None]
  - DEPRESSED MOOD [None]
  - DEREALISATION [None]
  - DIARRHOEA [None]
  - DISORIENTATION [None]
  - DIZZINESS [None]
  - EYE DISORDER [None]
  - FATIGUE [None]
  - GAIT DISTURBANCE [None]
  - HALLUCINATION, AUDITORY [None]
  - HEADACHE [None]
  - HYPOAESTHESIA [None]
  - INDIFFERENCE [None]
  - MEMORY IMPAIRMENT [None]
  - NEUROLOGICAL SYMPTOM [None]
  - PARAESTHESIA [None]
  - SENSORY DISTURBANCE [None]
  - TEARFULNESS [None]
  - VISUAL DISTURBANCE [None]
  - WITHDRAWAL SYNDROME [None]
